FAERS Safety Report 18325599 (Version 3)
Quarter: 2022Q2

REPORT INFORMATION
  Report Type: Spontaneous
  Country: US (occurrence: US)
  Receive Date: 20200929
  Receipt Date: 20220511
  Transmission Date: 20220721
  Serious: Yes (Other)
  Sender: FDA-Public Use
  Company Number: US-PFIZER INC-2020372661

PATIENT
  Age: 60 Year
  Sex: Female

DRUGS (2)
  1. IBRANCE [Suspect]
     Active Substance: PALBOCICLIB
     Indication: Breast cancer female
     Dosage: 125 MG
  2. IBRANCE [Suspect]
     Active Substance: PALBOCICLIB
     Dosage: 75 MG, CYCLIC (IBRANCE 75MG QD 21 D ON/7 OFF)
     Dates: start: 20180130

REACTIONS (13)
  - Arthralgia [Unknown]
  - Joint stiffness [Unknown]
  - Dysstasia [Unknown]
  - Joint swelling [Unknown]
  - Swelling [Unknown]
  - Nervousness [Unknown]
  - Infection [Unknown]
  - Fatigue [Not Recovered/Not Resolved]
  - Headache [Not Recovered/Not Resolved]
  - Myalgia [Not Recovered/Not Resolved]
  - Neoplasm progression [Unknown]
  - Pain [Unknown]
  - Asthenia [Unknown]
